FAERS Safety Report 20633254 (Version 2)
Quarter: 2022Q1

REPORT INFORMATION
  Report Type: Spontaneous
  Country: US (occurrence: US)
  Receive Date: 20220324
  Receipt Date: 20220324
  Transmission Date: 20220423
  Serious: No
  Sender: FDA-Public Use
  Company Number: US-PFIZER INC-202200403428

PATIENT
  Age: 80 Year

DRUGS (2)
  1. PREMARIN [Suspect]
     Active Substance: ESTROGENS, CONJUGATED
     Indication: Urinary tract disorder
     Dosage: A LITTLE BIT 2 DAYS A WEEK ALTERNATE
  2. PREMARIN [Suspect]
     Active Substance: ESTROGENS, CONJUGATED
     Indication: Urinary tract disorder
     Dosage: UNK

REACTIONS (3)
  - Vulvovaginal dryness [Unknown]
  - Vulvovaginal mycotic infection [Unknown]
  - Off label use [Unknown]
